FAERS Safety Report 19520120 (Version 1)
Quarter: 2021Q3

REPORT INFORMATION
  Report Type: Spontaneous
  Country: FR (occurrence: FR)
  Receive Date: 20210712
  Receipt Date: 20210712
  Transmission Date: 20211014
  Serious: Yes (Other)
  Sender: FDA-Public Use
  Company Number: NVSC2021FR149126

PATIENT
  Age: 72 Year
  Sex: Female
  Weight: 76 kg

DRUGS (3)
  1. IBRANCE [Suspect]
     Active Substance: PALBOCICLIB
     Dosage: 125 MG, CYCLIC (21 DAYS OUT OF 28 DAYS)
     Route: 065
     Dates: start: 20200214
  2. FULVESTRANT. [Suspect]
     Active Substance: FULVESTRANT
     Indication: PRODUCT USED FOR UNKNOWN INDICATION
     Dosage: 500 MG, CYCLIC (1/28 DAYS)
     Route: 065
     Dates: start: 20191024
  3. IBRANCE [Suspect]
     Active Substance: PALBOCICLIB
     Indication: PRODUCT USED FOR UNKNOWN INDICATION
     Dosage: 125 MG, CYCLIC ((21 DAYS OUT OF 28 DAYS)
     Route: 065
     Dates: start: 20191212, end: 20200206

REACTIONS (3)
  - Neutropenia [Recovering/Resolving]
  - Bronchitis [Recovered/Resolved]
  - Upper respiratory tract infection [Recovered/Resolved]

NARRATIVE: CASE EVENT DATE: 20200127
